FAERS Safety Report 5368290-9 (Version None)
Quarter: 2007Q2

REPORT INFORMATION
  Report Type: 
  Country: None (occurrence: None)
  Receive Date: 20070619
  Receipt Date: 20070604
  Transmission Date: 20071010
  Serious: Yes (Hospitalization)
  Sender: FDA-Public Use
  Company Number: 100#08#2007-02097

PATIENT
  Age: 35 Year
  Sex: Female

DRUGS (1)
  1. TAMOXIFEN CITRATE [Suspect]
     Indication: BREAST CANCER IN SITU

REACTIONS (3)
  - OESTRADIOL INCREASED [None]
  - OVARIAN CYST [None]
  - OVARIAN CYST TORSION [None]
